FAERS Safety Report 4824008-7 (Version None)
Quarter: 2005Q4

REPORT INFORMATION
  Report Type: 
  Country: None (occurrence: None)
  Receive Date: 20051107
  Receipt Date: 20051028
  Transmission Date: 20060501
  Serious: Yes (Other)
  Sender: FDA-Public Use
  Company Number: 2005149954

PATIENT

DRUGS (2)
  1. DILANTIN [Suspect]
     Indication: ILL-DEFINED DISORDER
  2. DEPAKOTE [Suspect]
     Indication: ILL-DEFINED DISORDER

REACTIONS (2)
  - MULTIPLE DRUG OVERDOSE [None]
  - SUBDURAL HAEMATOMA [None]
